FAERS Safety Report 23388311 (Version 2)
Quarter: 2024Q1

REPORT INFORMATION
  Report Type: Spontaneous
  Country: US (occurrence: US)
  Receive Date: 20240110
  Receipt Date: 20240227
  Transmission Date: 20240410
  Serious: Yes (Other)
  Sender: FDA-Public Use
  Company Number: US-BIOVITRUM-2024-US-000361

PATIENT
  Age: 4 Month
  Sex: Female
  Weight: 6.93 kg

DRUGS (9)
  1. SYNAGIS [Suspect]
     Active Substance: PALIVIZUMAB
     Indication: Aortic dilatation
     Dosage: ONCE A MONTH INTO THE MUSCLE
     Route: 030
     Dates: start: 20231121
  2. SYNAGIS [Suspect]
     Active Substance: PALIVIZUMAB
     Indication: Hypoxia
  3. SYNAGIS [Suspect]
     Active Substance: PALIVIZUMAB
     Indication: Premature baby
  4. SYNAGIS [Suspect]
     Active Substance: PALIVIZUMAB
     Indication: Obstructive sleep apnoea syndrome
  5. AMOXICILLIN [Concomitant]
     Active Substance: AMOXICILLIN
     Indication: Product used for unknown indication
     Dosage: 125 MG/5ML SUSP RECON, OTHER?3.5 ML TWICE DAILY
  6. VITAMIN D3 [Concomitant]
     Active Substance: CHOLECALCIFEROL
     Indication: Product used for unknown indication
     Dosage: 10(400)/ML DROPS
  7. PROBIOTIC-IMMUNE [Concomitant]
     Indication: Product used for unknown indication
     Dosage: 1B-45 MG TAB CHEW
  8. EPINEPHRINE [Concomitant]
     Active Substance: EPINEPHRINE
     Indication: Product used for unknown indication
  9. OXYGEN [Concomitant]
     Active Substance: OXYGEN
     Indication: Product used for unknown indication
     Dosage: 0.25 DURING THE DAY AND 0.5 AT NIGHT

REACTIONS (5)
  - Ear infection [Unknown]
  - Unresponsive to stimuli [Recovering/Resolving]
  - Oxygen saturation decreased [Recovering/Resolving]
  - Respiratory rate decreased [Recovering/Resolving]
  - Oxygen saturation abnormal [Recovering/Resolving]
